FAERS Safety Report 7348142-5 (Version None)
Quarter: 2011Q1

REPORT INFORMATION
  Report Type: 
  Country: None (occurrence: None)
  Receive Date: 20110311
  Receipt Date: 20110125
  Transmission Date: 20110831
  Serious: Yes (Death)
  Sender: FDA-Public Use
  Company Number: US-TYCO HEALTHCARE/MALLINCKRODT-T201100467

PATIENT
  Age: 53 Year
  Sex: Male

DRUGS (6)
  1. CODEINE [Suspect]
  2. MUSCLE RELAXANTS [Suspect]
  3. MARIJUANA [Suspect]
  4. METAMFETAMINE [Suspect]
  5. HYDROCODONE/ACETAMINOPHEN [Suspect]
  6. ACETYLCYSTEINE [Suspect]
     Dosage: APPROXIMATELY 100 GRAMS

REACTIONS (4)
  - ADVERSE DRUG REACTION [None]
  - MULTI-ORGAN FAILURE [None]
  - MEDICATION ERROR [None]
  - HYPERSENSITIVITY [None]
